FAERS Safety Report 5029342-6 (Version None)
Quarter: 2006Q3

REPORT INFORMATION
  Report Type: 
  Country: None (occurrence: None)
  Receive Date: 20060614
  Receipt Date: 20060526
  Transmission Date: 20061208
  Serious: Yes (Disabling)
  Sender: FDA-Public Use
  Company Number: US200603005178

PATIENT
  Age: 74 Year
  Sex: Female
  Weight: 57.1 kg

DRUGS (2)
  1. EVISTA [Suspect]
     Indication: OSTEOPOROSIS
     Dosage: 60 MG, UNK, ORAL
     Route: 048
     Dates: start: 20020901, end: 20050201
  2. FORTEO [Suspect]
     Dosage: UNK
     Route: 065

REACTIONS (4)
  - BONE DENSITY DECREASED [None]
  - DRUG INEFFECTIVE [None]
  - LUMBAR VERTEBRAL FRACTURE [None]
  - MUSCLE SPASMS [None]
